FAERS Safety Report 10035863 (Version 1)
Quarter: 2014Q1

REPORT INFORMATION
  Report Type: Spontaneous
  Country: FR (occurrence: FR)
  Receive Date: 20140325
  Receipt Date: 20140325
  Transmission Date: 20141002
  Serious: Yes (Life-Threatening, Hospitalization)
  Sender: FDA-Public Use
  Company Number: FR-US-EMD SERONO, INC.-7276364

PATIENT
  Age: 40 Year
  Sex: Female

DRUGS (5)
  1. GONAL-F [Suspect]
     Indication: ASSISTED FERTILISATION
     Dosage: 300 IU/0.5 ML (22 MICROGRAMS/0.5 ML)
     Route: 058
     Dates: start: 20140121, end: 20140131
  2. OVITRELLE [Suspect]
     Indication: ASSISTED FERTILISATION
     Dosage: 1 IN 1 SINGLE DOSE
     Route: 058
  3. DECAPEPTYL /00486501/ [Suspect]
     Indication: ASSISTED FERTILISATION
     Route: 058
     Dates: start: 20140107, end: 20140131
  4. MAGNESIUM [Concomitant]
     Indication: PRODUCT USED FOR UNKNOWN INDICATION
  5. VITAMIN B6 [Concomitant]
     Indication: PRODUCT USED FOR UNKNOWN INDICATION

REACTIONS (5)
  - Cardiac arrest [Recovered/Resolved]
  - Acute myocardial infarction [Not Recovered/Not Resolved]
  - Cardiogenic shock [Not Recovered/Not Resolved]
  - Pulmonary embolism [Not Recovered/Not Resolved]
  - Embolism [Not Recovered/Not Resolved]
